FAERS Safety Report 7047234-8 (Version None)
Quarter: 2010Q4

REPORT INFORMATION
  Report Type: 
  Country: None (occurrence: None)
  Receive Date: 20101014
  Receipt Date: 20101014
  Transmission Date: 20110411
  Serious: Yes (Life-Threatening, Congenital Anomaly)
  Sender: FDA-Public Use
  Company Number: None

PATIENT
  Age: 69 Year
  Sex: Female
  Weight: 46.2669 kg

DRUGS (2)
  1. VIMPAT [Suspect]
     Indication: CONVULSION
     Dates: start: 20100803, end: 20100930
  2. VIMPAT [Suspect]
     Dates: start: 20100810, end: 20100930

REACTIONS (17)
  - BLADDER DISORDER [None]
  - BREAST TENDERNESS [None]
  - COUGH [None]
  - DISORIENTATION [None]
  - DRY MOUTH [None]
  - DYSGRAPHIA [None]
  - EAR DISCOMFORT [None]
  - EAR PAIN [None]
  - GINGIVAL BLEEDING [None]
  - GINGIVITIS [None]
  - HYPERSENSITIVITY [None]
  - LYMPHADENOPATHY [None]
  - MEMORY IMPAIRMENT [None]
  - NIPPLE DISORDER [None]
  - NOCTURIA [None]
  - PARAESTHESIA ORAL [None]
  - URINARY TRACT DISORDER [None]
